FAERS Safety Report 4403933-5 (Version None)
Quarter: 2004Q3

REPORT INFORMATION
  Report Type: 
  Country: None (occurrence: None)
  Receive Date: 20040719
  Receipt Date: 20040706
  Transmission Date: 20050211
  Serious: Yes (Other)
  Sender: FDA-Public Use
  Company Number: 2004-BP-05568YA (0)

PATIENT
  Sex: Male

DRUGS (1)
  1. OMIX (TAMSULOSIN HYDROCHLORIDE) (TAMSULOSIN) (TAMSULOSIN HYDROCHLORIDE [Suspect]
     Dosage: 0.4 MG PO
     Route: 048

REACTIONS (1)
  - PANCREATITIS ACUTE [None]
